FAERS Safety Report 4334642-9 (Version None)
Quarter: 2004Q2

REPORT INFORMATION
  Report Type: 
  Country: None (occurrence: None)
  Receive Date: 20040408
  Receipt Date: 20040216
  Transmission Date: 20050107
  Serious: Yes (Hospitalization)
  Sender: FDA-Public Use
  Company Number: PHRM2004FR00889

PATIENT
  Age: 50 Year
  Sex: Male

DRUGS (15)
  1. TRILEPTAL [Suspect]
     Indication: AGGRESSION
     Dosage: 450 MG, BID
     Route: 048
     Dates: start: 20031221
  2. PREVISCAN [Suspect]
     Dosage: 2 DF DAILY
     Route: 048
     Dates: end: 20040123
  3. PREVISCAN [Suspect]
     Route: 048
     Dates: start: 20040201
  4. KARDEGIC [Concomitant]
     Dosage: 250 MG, BID
  5. CORDARONE [Concomitant]
     Dosage: 1 DF, QD
  6. EUPRESSYL [Concomitant]
     Dosage: 1 DF, BID
  7. MONO-TILDIEM - SLOW RELEASE [Concomitant]
     Dosage: 1 DF, QD
  8. VASTEN [Concomitant]
     Dosage: 10 MG, QD
     Route: 048
  9. NORSET [Concomitant]
     Dosage: 30 MG, QD
  10. ESOMEPRAZOLE [Concomitant]
     Indication: GASTRIC ULCER
     Dosage: 40 MG, QD
     Route: 048
  11. TRANXENE [Concomitant]
     Indication: ABNORMAL BEHAVIOUR
     Dosage: 10 MG, TID
     Route: 048
  12. MOTILIUM TABLET ^SANOFI-SYNTHELABO^ [Concomitant]
     Dosage: 1 DF, TID
     Route: 048
  13. HALDOL [Concomitant]
     Indication: ABNORMAL BEHAVIOUR
     Dosage: 50 DRP, TID
     Route: 048
  14. FORLAX [Concomitant]
     Dosage: 2 DF, QD
  15. CONTALAX [Concomitant]
     Dosage: 2 DF, QD

REACTIONS (2)
  - DRUG INTERACTION [None]
  - INTERNATIONAL NORMALISED RATIO DECREASED [None]
